FAERS Safety Report 9139571 (Version 4)
Quarter: 2013Q3

REPORT INFORMATION
  Report Type: Spontaneous
  Country: US (occurrence: US)
  Receive Date: 20130305
  Receipt Date: 20130808
  Transmission Date: 20140515
  Serious: Yes (Other)
  Sender: FDA-Public Use
  Company Number: US-AMGEN-USASP2013013543

PATIENT
  Age: 53 Year
  Sex: Female
  Weight: 80.27 kg

DRUGS (5)
  1. PROLIA [Suspect]
     Indication: OSTEOPOROSIS POSTMENOPAUSAL
     Dosage: 60 MG, Q6MO
     Route: 058
     Dates: start: 20120307
  2. PROLIA [Suspect]
     Dosage: UNK
     Route: 058
     Dates: start: 20120507
  3. PROLIA [Suspect]
     Dosage: UNK
     Route: 058
     Dates: start: 20130208
  4. VITAMIN D                          /00318501/ [Concomitant]
     Dosage: 1200 MG, QD
  5. CALCIUM [Concomitant]
     Dosage: UNK UNK, QD

REACTIONS (7)
  - Foot fracture [Recovered/Resolved]
  - Stress fracture [Unknown]
  - Impaired healing [Unknown]
  - Gait disturbance [Unknown]
  - Pain [Recovering/Resolving]
  - Contusion [Unknown]
  - Local swelling [Unknown]
